FAERS Safety Report 8612554-X (Version None)
Quarter: 2012Q3

REPORT INFORMATION
  Report Type: 
  Country: None (occurrence: None)
  Receive Date: 20120822
  Receipt Date: 20111202
  Transmission Date: 20120928
  Serious: No
  Sender: FDA-Public Use
  Company Number: US-ASTRAZENECA-2011SE60937

PATIENT
  Age: 54 Year
  Sex: Female

DRUGS (3)
  1. SYMBICORT [Suspect]
     Route: 055
  2. ALBUTEROL [Concomitant]
     Route: 065
  3. NEXIUM [Suspect]
     Route: 048

REACTIONS (7)
  - RESPIRATORY TRACT CONGESTION [None]
  - DYSPNOEA [None]
  - WRONG DRUG ADMINISTERED [None]
  - MALAISE [None]
  - DRUG DOSE OMISSION [None]
  - COUGH [None]
  - INCORRECT DOSE ADMINISTERED [None]
